FAERS Safety Report 13451618 (Version 1)
Quarter: 2017Q2

REPORT INFORMATION
  Report Type: Spontaneous
  Country: US (occurrence: US)
  Receive Date: 20170418
  Receipt Date: 20170418
  Transmission Date: 20170830
  Serious: No
  Sender: FDA-Public Use
  Company Number: US-PFIZER INC-2017159877

PATIENT
  Age: 63 Year
  Sex: Male

DRUGS (1)
  1. DOXYCYCLINE HYCLATE. [Suspect]
     Active Substance: DOXYCYCLINE HYCLATE
     Indication: SINUS DISORDER
     Dosage: UNK

REACTIONS (3)
  - Photosensitivity reaction [Unknown]
  - Blister [Unknown]
  - Sunburn [Unknown]
